FAERS Safety Report 14998414 (Version 1)
Quarter: 2018Q2

REPORT INFORMATION
  Report Type: Spontaneous
  Country: US (occurrence: US)
  Receive Date: 20180521
  Receipt Date: 20180521
  Transmission Date: 20180711
  Serious: Yes (Hospitalization)
  Sender: FDA-Public Use
  Company Number: None

PATIENT
  Age: 72 Year
  Sex: Female

DRUGS (18)
  1. DULOXETINE. [Concomitant]
     Active Substance: DULOXETINE
  2. TRIAMTERENE AND HYDROCHLOROTHIAZIDE [Concomitant]
     Active Substance: HYDROCHLOROTHIAZIDE\TRIAMTERENE
  3. COSENTYX [Suspect]
     Active Substance: SECUKINUMAB
     Indication: ANKYLOSING SPONDYLITIS
  4. RANITIDINE. [Concomitant]
     Active Substance: RANITIDINE
  5. AMPHETAMINE/DEXTROAMPHETAMINE SALTS [Concomitant]
  6. DICLOFENAC [Concomitant]
     Active Substance: DICLOFENAC
  7. LITHIUM CARBONATE. [Concomitant]
     Active Substance: LITHIUM CARBONATE
  8. METOPROLOL. [Concomitant]
     Active Substance: METOPROLOL
  9. LORAZEPAM. [Concomitant]
     Active Substance: LORAZEPAM
  10. LIOTHYRONINE [Concomitant]
     Active Substance: LIOTHYRONINE
  11. DICLOFENAC [Concomitant]
     Active Substance: DICLOFENAC
  12. HYDROCORTISONE. [Concomitant]
     Active Substance: HYDROCORTISONE
  13. QUETIAPINE. [Concomitant]
     Active Substance: QUETIAPINE
  14. DEXAMETHASONE. [Concomitant]
     Active Substance: DEXAMETHASONE
  15. COSENTYX [Suspect]
     Active Substance: SECUKINUMAB
     Indication: PSORIASIS
  16. BACLOFEN. [Concomitant]
     Active Substance: BACLOFEN
  17. AMOXICILLIN. [Concomitant]
     Active Substance: AMOXICILLIN
  18. ZOLPIDEM [Concomitant]
     Active Substance: ZOLPIDEM\ZOLPIDEM TARTRATE

REACTIONS (2)
  - Fall [None]
  - Facial bones fracture [None]

NARRATIVE: CASE EVENT DATE: 201805
